FAERS Safety Report 23815565 (Version 1)
Quarter: 2024Q2

REPORT INFORMATION
  Report Type: Spontaneous
  Country: US (occurrence: None)
  Receive Date: 20240502
  Receipt Date: 20240502
  Transmission Date: 20240716
  Serious: Yes (Death, Hospitalization)
  Sender: FDA-Public Use
  Company Number: None

PATIENT
  Age: 68 Year
  Sex: Female
  Weight: 112 kg

DRUGS (1)
  1. KEYTRUDA [Suspect]
     Active Substance: PEMBROLIZUMAB
     Dates: start: 20240119

REACTIONS (8)
  - Tachycardia [None]
  - Tachypnoea [None]
  - Radiation pneumonitis [None]
  - Pulmonary oedema [None]
  - Oxygen consumption increased [None]
  - Pulmonary toxicity [None]
  - Lung opacity [None]
  - Disease complication [None]

NARRATIVE: CASE EVENT DATE: 20240317
